FAERS Safety Report 5490553-7 (Version None)
Quarter: 2007Q4

REPORT INFORMATION
  Report Type: 
  Country: None (occurrence: None)
  Receive Date: 20071019
  Receipt Date: 20071010
  Transmission Date: 20080405
  Serious: Yes (Hospitalization)
  Sender: FDA-Public Use
  Company Number: US-JNJFOC-20070805728

PATIENT
  Age: 44 Year
  Sex: Female

DRUGS (23)
  1. PREZISTA [Suspect]
     Route: 048
  2. PREZISTA [Suspect]
     Indication: HIV INFECTION
     Route: 048
  3. MK0518 [Concomitant]
     Route: 048
  4. MK0518 [Concomitant]
     Indication: HIV INFECTION
     Route: 048
  5. NORVIR [Concomitant]
     Route: 048
  6. NORVIR [Concomitant]
     Indication: HIV INFECTION
     Route: 048
  7. EPIVIR [Concomitant]
     Route: 048
  8. EPIVIR [Concomitant]
     Indication: HIV INFECTION
     Route: 048
  9. TYLENOL (CAPLET) [Concomitant]
     Route: 065
  10. PERCOCET [Concomitant]
     Route: 065
  11. ALBUTEROL [Concomitant]
     Route: 065
  12. LOMOTIL [Concomitant]
     Route: 065
  13. DAPSONE [Concomitant]
     Route: 065
  14. ZITHROMAX [Concomitant]
     Route: 065
  15. FLUCONAZOLE [Concomitant]
     Route: 065
  16. CLARINEX [Concomitant]
     Route: 065
  17. LORAZEPAM [Concomitant]
     Route: 065
  18. LOPERAMIDE HCL [Concomitant]
     Route: 065
  19. MORPHINE SO4 [Concomitant]
     Route: 065
  20. LYRICA [Concomitant]
     Route: 065
  21. COMPAZINE [Concomitant]
     Route: 065
  22. VALTREX [Concomitant]
     Route: 065
  23. RANITIDINE HCL [Concomitant]
     Route: 065

REACTIONS (5)
  - ANAEMIA [None]
  - DEHYDRATION [None]
  - HYPERCALCAEMIA [None]
  - PANCREATITIS ACUTE [None]
  - PNEUMONIA [None]
